FAERS Safety Report 6213205-4 (Version None)
Quarter: 2009Q2

REPORT INFORMATION
  Report Type: 
  Country: None (occurrence: None)
  Receive Date: 20090528
  Receipt Date: 20080423
  Transmission Date: 20091009
  Serious: Yes (Other)
  Sender: FDA-Public Use
  Company Number: LVR-00058

PATIENT
  Sex: Female

DRUGS (2)
  1. LO/OVRAL-28 [Suspect]
     Dosage: ONE TABLET QD ORAL
     Route: 048
     Dates: start: 20060101
  2. MARIJUANA [Concomitant]

REACTIONS (1)
  - ARTERIAL THROMBOSIS [None]
